FAERS Safety Report 6567859-3 (Version None)
Quarter: 2010Q1

REPORT INFORMATION
  Report Type: 
  Country: None (occurrence: None)
  Receive Date: 20100203
  Receipt Date: 20100201
  Transmission Date: 20100710
  Serious: Yes (Life-Threatening)
  Sender: FDA-Public Use
  Company Number: NZ-ASTRAZENECA-2010SE04551

PATIENT
  Age: 18549 Day
  Sex: Female

DRUGS (5)
  1. PROPOFOL [Suspect]
     Route: 042
     Dates: start: 20060126, end: 20060126
  2. LIDOCAINE [Suspect]
     Dates: start: 20060126, end: 20060126
  3. FENTANYL [Suspect]
     Dosage: 100 RG ONCE
     Dates: start: 20060126, end: 20060126
  4. LORATADINE [Concomitant]
     Route: 048
  5. ALBUTEROL [Concomitant]

REACTIONS (2)
  - ANAPHYLACTIC SHOCK [None]
  - BRADYCARDIA [None]
